FAERS Safety Report 7274312-0 (Version None)
Quarter: 2011Q1

REPORT INFORMATION
  Report Type: 
  Country: None (occurrence: None)
  Receive Date: 20110131
  Receipt Date: 20110131
  Transmission Date: 20110831
  Serious: No
  Sender: FDA-Public Use
  Company Number: None

PATIENT
  Sex: Male
  Weight: 70.7611 kg

DRUGS (8)
  1. DAPSONE [Concomitant]
  2. AZITHRO [Concomitant]
  3. VIAGRA [Concomitant]
  4. DEPAKOTE [Concomitant]
  5. FLUCONAZOLE [Concomitant]
  6. TENOFOVIR DISOPROXIL FUMARATE [Suspect]
     Indication: HIV INFECTION
     Dosage: 300 MG PO DAILY
     Route: 048
     Dates: start: 20050201, end: 20110101
  7. ATRIPLA [Concomitant]
  8. LOPERAMIDE [Concomitant]

REACTIONS (3)
  - DIALYSIS [None]
  - NEPHROPATHY TOXIC [None]
  - RENAL FAILURE ACUTE [None]
